FAERS Safety Report 16046758 (Version 3)
Quarter: 2019Q3

REPORT INFORMATION
  Report Type: Spontaneous
  Country: US (occurrence: US)
  Receive Date: 20190307
  Receipt Date: 20190722
  Transmission Date: 20191004
  Serious: No
  Sender: FDA-Public Use
  Company Number: US-PFIZER INC-2019088113

PATIENT
  Age: 56 Year
  Sex: Male
  Weight: 97.98 kg

DRUGS (1)
  1. VIAGRA [Suspect]
     Active Substance: SILDENAFIL CITRATE
     Indication: ERECTILE DYSFUNCTION
     Dosage: 50 MG, UNK (30 MINUTES PRIOR TO SEX  )
     Route: 048

REACTIONS (1)
  - Therapeutic product effect incomplete [Not Recovered/Not Resolved]
